FAERS Safety Report 8355503-4 (Version None)
Quarter: 2012Q2

REPORT INFORMATION
  Report Type: 
  Country: None (occurrence: None)
  Receive Date: 20120512
  Receipt Date: 20120511
  Transmission Date: 20120825
  Serious: Yes (Hospitalization)
  Sender: FDA-Public Use
  Company Number: DE-ABBOTT-12P-062-0929876-00

PATIENT
  Sex: Male
  Weight: 81 kg

DRUGS (6)
  1. TRUVADA [Concomitant]
     Indication: HIV INFECTION
     Dosage: 200/245 MILLIGRAM
     Dates: start: 20110926, end: 20120422
  2. MYAMBUTOL [Concomitant]
     Indication: PRODUCT USED FOR UNKNOWN INDICATION
     Dates: start: 20111205, end: 20120422
  3. AZITHROMYCIN [Concomitant]
     Indication: PRODUCT USED FOR UNKNOWN INDICATION
     Dates: start: 20111205, end: 20120422
  4. COTRIM [Concomitant]
     Indication: PRODUCT USED FOR UNKNOWN INDICATION
     Dates: start: 20110926, end: 20120422
  5. KALETRA [Suspect]
     Indication: HIV INFECTION
     Dates: start: 20110926, end: 20120422
  6. MYCOBUTIN [Concomitant]
     Indication: PRODUCT USED FOR UNKNOWN INDICATION
     Dates: start: 20120320, end: 20120422

REACTIONS (2)
  - TUBERCULOSIS GASTROINTESTINAL [None]
  - INTESTINAL OBSTRUCTION [None]
